FAERS Safety Report 7095649-4 (Version None)
Quarter: 2010Q4

REPORT INFORMATION
  Report Type: 
  Country: None (occurrence: None)
  Receive Date: 20101111
  Receipt Date: 20101028
  Transmission Date: 20110411
  Serious: Yes (Hospitalization)
  Sender: FDA-Public Use
  Company Number: PHFR2010IE05050

PATIENT
  Sex: Male

DRUGS (2)
  1. CLOZARIL [Suspect]
     Indication: SCHIZOPHRENIA
     Route: 048
     Dates: start: 20101008, end: 20101021
  2. HALOPERIDOL [Concomitant]
     Dosage: UNK
     Dates: start: 20100901

REACTIONS (6)
  - BODY TEMPERATURE INCREASED [None]
  - CATATONIA [None]
  - HYPERHIDROSIS [None]
  - LABILE BLOOD PRESSURE [None]
  - NEUROLEPTIC MALIGNANT SYNDROME [None]
  - TACHYCARDIA [None]
